FAERS Safety Report 18097857 (Version 1)
Quarter: 2020Q3

REPORT INFORMATION
  Report Type: Spontaneous
  Country: CN (occurrence: CN)
  Receive Date: 20200730
  Receipt Date: 20200730
  Transmission Date: 20201103
  Serious: Yes (Hospitalization, Other)
  Sender: FDA-Public Use
  Company Number: CN-BRISTOL-MYERS SQUIBB COMPANY-BMS-2020-059950

PATIENT
  Age: 57 Year
  Sex: Male
  Weight: 70 kg

DRUGS (1)
  1. OPDIVO [Suspect]
     Active Substance: NIVOLUMAB
     Indication: NON-SMALL CELL LUNG CANCER
     Dosage: 40 MILLIGRAM, Q2WK
     Route: 042
     Dates: start: 201907

REACTIONS (4)
  - Diabetes mellitus [Unknown]
  - Diarrhoea [Unknown]
  - Prescribed underdose [Unknown]
  - Immune-mediated encephalitis [Not Recovered/Not Resolved]

NARRATIVE: CASE EVENT DATE: 201909
